FAERS Safety Report 7369951-2 (Version None)
Quarter: 2011Q1

REPORT INFORMATION
  Report Type: 
  Country: None (occurrence: None)
  Receive Date: 20110323
  Receipt Date: 20110318
  Transmission Date: 20110831
  Serious: Yes (Hospitalization, Other)
  Sender: FDA-Public Use
  Company Number: DE-PFIZER INC-2011005745

PATIENT
  Age: 69 Year
  Sex: Female
  Weight: 68.5 kg

DRUGS (14)
  1. VALPROATE SODIUM [Concomitant]
     Indication: SCHIZOAFFECTIVE DISORDER
     Dosage: 450 MG/DAY (150 MG IN THE MORNING, 300 MG IN THE EVENING)
     Route: 048
     Dates: start: 20101222
  2. TEMAZEP [Concomitant]
     Dosage: 10 MG, 1X/DAY
  3. ASPIRIN [Concomitant]
     Dosage: 100 MG, 1X/DAY
  4. METFORMIN [Concomitant]
     Dosage: 500 MG, 2X/DAY
  5. MIRTAZAPINE [Concomitant]
     Dosage: 1 DF, 1X/DAY
  6. LYRICA [Suspect]
     Indication: SCHIZOAFFECTIVE DISORDER
     Dosage: 75 MG/DAY
     Route: 048
     Dates: start: 20101222
  7. LYRICA [Interacting]
     Indication: HALLUCINATION
     Dosage: 200 MG DAILY
     Route: 048
  8. QUILONUM - SLOW RELEASE [Concomitant]
     Indication: SCHIZOAFFECTIVE DISORDER
     Dosage: 450 MG (225 MG IN THE MORNING, 225 MG IN THE EVENING)
     Route: 048
     Dates: start: 20101222
  9. LORAZEPAM [Concomitant]
     Dosage: 1.5 MG DAILY (0.5 MG IN THE MORNING, 0.5 MG AT NOON, 0.5 MG IN THE EVENING, AS REQUIRED)
  10. INSUMAN COMB 25 [Concomitant]
     Dosage: UNK
  11. TREVILOR RETARD [Interacting]
     Dosage: 150 MG, UNK
     Route: 048
     Dates: start: 20101222
  12. QUILONUM - SLOW RELEASE [Concomitant]
     Indication: HALLUCINATION
  13. VALPROATE SODIUM [Concomitant]
     Indication: HALLUCINATION
  14. SIMVASTATIN [Concomitant]
     Dosage: 20 MG, 1X/DAY

REACTIONS (1)
  - ELECTROCARDIOGRAM QT PROLONGED [None]
